FAERS Safety Report 16029240 (Version 1)
Quarter: 2019Q1

REPORT INFORMATION
  Report Type: Spontaneous
  Country: US (occurrence: US)
  Receive Date: 20190304
  Receipt Date: 20190304
  Transmission Date: 20190418
  Serious: No
  Sender: FDA-Public Use
  Company Number: US-SA-2019SA055250

PATIENT
  Age: 61 Year
  Sex: Female

DRUGS (1)
  1. LANTUS SOLOSTAR [Suspect]
     Active Substance: INSULIN GLARGINE
     Indication: TYPE 2 DIABETES MELLITUS
     Dosage: 10 U, QD
     Route: 065
     Dates: start: 201901

REACTIONS (6)
  - Headache [Unknown]
  - Pruritus generalised [Unknown]
  - Injection site pruritus [Unknown]
  - Injection site pain [Unknown]
  - Dizziness [Unknown]
  - Vision blurred [Unknown]
